FAERS Safety Report 4309860-6 (Version None)
Quarter: 2004Q1

REPORT INFORMATION
  Report Type: 
  Country: None (occurrence: None)
  Receive Date: 20040227
  Receipt Date: 20040130
  Transmission Date: 20041129
  Serious: No
  Sender: FDA-Public Use
  Company Number: FABR-10464

PATIENT
  Age: 10 Year
  Sex: Female
  Weight: 51 kg

DRUGS (1)
  1. FABRAZYME [Suspect]
     Indication: FABRY'S DISEASE
     Dosage: 51 MG Q2WKS IV
     Dates: start: 20030901

REACTIONS (2)
  - GENERAL PHYSICAL CONDITION ABNORMAL [None]
  - NASOPHARYNGITIS [None]
